FAERS Safety Report 21767618 (Version 3)
Quarter: 2022Q4

REPORT INFORMATION
  Report Type: Other
  Country: US (occurrence: None)
  Receive Date: 20221222
  Receipt Date: 20221230
  Transmission Date: 20230113
  Serious: Yes (Hospitalization, Other)
  Sender: FDA-Public Use
  Company Number: US-ROCHE-3244284

PATIENT
  Age: 32 Year
  Sex: Male
  Weight: 32.2 kg

DRUGS (3)
  1. OCREVUS [Suspect]
     Active Substance: OCRELIZUMAB
     Indication: Relapsing-remitting multiple sclerosis
     Dosage: ONGOING: YES, INFUSE 600 MG INTRAVENOUSLY EVERY 6 MONTHS, LAST DATE OF TREATMENT: 20/OCT/2020
     Route: 042
     Dates: start: 201804
  2. OCREVUS [Suspect]
     Active Substance: OCRELIZUMAB
     Route: 065
     Dates: start: 20190305, end: 20220531
  3. OCREVUS [Suspect]
     Active Substance: OCRELIZUMAB
     Dosage: (STRENGTH: 30 MG/ML), INJECT 20 ML IV ONCE EVERY 6 MONTHS, DOT: 20/OCT/2020, 27/OCT/2021
     Route: 042
     Dates: start: 20210405

REACTIONS (4)
  - COVID-19 [Unknown]
  - Aphasia [Recovered/Resolved]
  - Amblyopia [Unknown]
  - Diplopia [Unknown]

NARRATIVE: CASE EVENT DATE: 20220301
